FAERS Safety Report 19330883 (Version 2)
Quarter: 2021Q3

REPORT INFORMATION
  Report Type: Spontaneous
  Country: AT (occurrence: AT)
  Receive Date: 20210528
  Receipt Date: 20210702
  Transmission Date: 20211014
  Serious: No
  Sender: FDA-Public Use
  Company Number: AT-ELI_LILLY_AND_COMPANY-AT202105006875

PATIENT
  Sex: Female

DRUGS (2)
  1. HUMALOG [Suspect]
     Active Substance: INSULIN LISPRO
     Indication: DIABETES MELLITUS
     Dosage: 15?36 U, OTHER (20 MINUTES AFTER EVERY MEAL)
     Route: 065
  2. HUMALOG [Suspect]
     Active Substance: INSULIN LISPRO
     Indication: DIABETES MELLITUS
     Dosage: 15?36 U, OTHER (20 MINUTES AFTER EVERY MEAL)
     Route: 065

REACTIONS (2)
  - Blood glucose abnormal [Unknown]
  - Drug ineffective [Unknown]
